FAERS Safety Report 10685973 (Version 1)
Quarter: 2014Q4

REPORT INFORMATION
  Report Type: Spontaneous
  Country: US (occurrence: US)
  Receive Date: 20141231
  Receipt Date: 20141231
  Transmission Date: 20150529
  Serious: No
  Sender: FDA-Public Use
  Company Number: US-GLAXOSMITHKLINE-US2014GSK044546

PATIENT
  Sex: Female

DRUGS (15)
  1. LACTULOSE. [Concomitant]
     Active Substance: LACTULOSE
  2. TUMS [Suspect]
     Active Substance: CALCIUM CARBONATE
     Indication: OFF LABEL USE
  3. INLYTA [Suspect]
     Active Substance: AXITINIB
     Indication: METASTATIC RENAL CELL CARCINOMA
  4. D VITAL [Concomitant]
     Active Substance: CALCIUM CARBONATE\CHOLECALCIFEROL
  5. ZOFRAN [Suspect]
     Active Substance: ONDANSETRON HYDROCHLORIDE
     Indication: NAUSEA
  6. PROTONIX [Concomitant]
     Active Substance: PANTOPRAZOLE SODIUM
  7. VOTRIENT [Suspect]
     Active Substance: PAZOPANIB HYDROCHLORIDE
     Indication: METASTATIC RENAL CELL CARCINOMA
  8. VITAMIN D [Concomitant]
     Active Substance: CHOLECALCIFEROL
     Dosage: MONTHLY
  9. AMLODIPINE [Concomitant]
     Active Substance: AMLODIPINE BESYLATE
  10. IMODIUM [Concomitant]
     Active Substance: LOPERAMIDE HYDROCHLORIDE
  11. FOSRENAL [Concomitant]
  12. TUMS [Suspect]
     Active Substance: CALCIUM CARBONATE
     Indication: DIARRHOEA
  13. ZOFRAN [Suspect]
     Active Substance: ONDANSETRON HYDROCHLORIDE
     Indication: VOMITING
  14. ZOMETA [Concomitant]
     Active Substance: ZOLEDRONIC ACID
  15. DIALYSIS [Concomitant]
     Active Substance: UNSPECIFIED INGREDIENT
     Indication: NEPHRECTOMY
     Dosage: 3 TIMES PER WEEK

REACTIONS (9)
  - Nausea [Unknown]
  - Personality change [Unknown]
  - Anger [Unknown]
  - Drug dose omission [Unknown]
  - Disease progression [Unknown]
  - Drug administration error [Unknown]
  - Aggression [Unknown]
  - Vomiting [Unknown]
  - Constipation [Unknown]
